FAERS Safety Report 5892600-7 (Version None)
Quarter: 2008Q3

REPORT INFORMATION
  Report Type: 
  Country: None (occurrence: None)
  Receive Date: 20080919
  Receipt Date: 20080919
  Transmission Date: 20090109
  Serious: Yes (Life-Threatening, Disabling, Other)
  Sender: FDA-Public Use
  Company Number: None

PATIENT
  Age: 58 Year
  Sex: Male
  Weight: 90.7194 kg

DRUGS (2)
  1. LEVAQUIN [Suspect]
     Indication: EPICONDYLITIS
     Dates: start: 20070306, end: 20070309
  2. CIPRO [Suspect]
     Indication: EAR INFECTION
     Dates: start: 20070919, end: 20071006

REACTIONS (10)
  - AURICULAR SWELLING [None]
  - EAR INFECTION [None]
  - HYPOAESTHESIA [None]
  - JOINT STIFFNESS [None]
  - JOINT SWELLING [None]
  - MOTOR DYSFUNCTION [None]
  - MYELITIS TRANSVERSE [None]
  - SPINAL CORD DISORDER [None]
  - SPINAL CORD INFECTION [None]
  - THERMAL BURN [None]
